FAERS Safety Report 8096676-0 (Version None)
Quarter: 2012Q1

REPORT INFORMATION
  Report Type: 
  Country: None (occurrence: None)
  Receive Date: 20120129
  Receipt Date: 20111201
  Transmission Date: 20120608
  Serious: No
  Sender: FDA-Public Use
  Company Number: US-ABBOTT-11P-163-0880261-00

PATIENT
  Sex: Female
  Weight: 101.7 kg

DRUGS (6)
  1. MELOXICAM [Concomitant]
     Indication: INFLAMMATION
  2. MELOXICAM [Concomitant]
     Indication: PAIN
  3. HUMIRA [Suspect]
     Indication: RHEUMATOID ARTHRITIS
     Route: 058
     Dates: start: 20101001
  4. HUMIRA [Suspect]
     Indication: EPISCLERITIS
  5. FOLIC ACID [Concomitant]
     Indication: DRUG THERAPY
  6. METHOTREXATE [Concomitant]
     Indication: RHEUMATOID ARTHRITIS

REACTIONS (4)
  - FALL [None]
  - JOINT INJURY [None]
  - ARTHRALGIA [None]
  - OFF LABEL USE [None]
